FAERS Safety Report 8029190-9 (Version None)
Quarter: 2012Q1

REPORT INFORMATION
  Report Type: 
  Country: None (occurrence: None)
  Receive Date: 20120106
  Receipt Date: 20120102
  Transmission Date: 20120608
  Serious: Yes (Hospitalization)
  Sender: FDA-Public Use
  Company Number: PHHY2012BR000728

PATIENT
  Age: 19 Year
  Sex: Female

DRUGS (5)
  1. CLOZAPINE [Suspect]
     Dosage: 100 MG, UNK
  2. CLOZAPINE [Suspect]
     Indication: SCHIZOPHRENIA
     Dosage: 100 MG, 1 TABLET A DAY
     Route: 048
  3. CLOZAPINE [Suspect]
     Dosage: 450 MG, A DAY (4 TABLETS AND HALF)
     Route: 048
  4. CLOZAPINE [Suspect]
     Dosage: 500 MG (5 TABLETS)
     Route: 048
  5. CLOZAPINE [Suspect]

REACTIONS (4)
  - ABNORMAL BEHAVIOUR [None]
  - TREMOR [None]
  - AGITATION [None]
  - MALAISE [None]
